FAERS Safety Report 6584878-1 (Version None)
Quarter: 2010Q1

REPORT INFORMATION
  Report Type: 
  Country: None (occurrence: None)
  Receive Date: 20100204
  Receipt Date: 20100128
  Transmission Date: 20100710
  Serious: Yes (Death)
  Sender: FDA-Public Use
  Company Number: 005800

PATIENT
  Sex: Female

DRUGS (1)
  1. CIMZIA [Suspect]
     Indication: CROHN'S DISEASE
     Dosage: (SUBCUTANEOUS)
     Route: 058
     Dates: start: 20090716

REACTIONS (5)
  - BLOOD PRESSURE INCREASED [None]
  - CARDIOMEGALY [None]
  - COLD SWEAT [None]
  - FEELING ABNORMAL [None]
  - HYPERHIDROSIS [None]
